FAERS Safety Report 11386459 (Version 1)
Quarter: 2015Q3

REPORT INFORMATION
  Report Type: Spontaneous
  Country: US (occurrence: None)
  Receive Date: 20150813
  Receipt Date: 20150813
  Transmission Date: 20151125
  Serious: No
  Sender: FDA-Public Use
  Company Number: None

PATIENT
  Age: 60 Year
  Sex: Female
  Weight: 89.81 kg

DRUGS (2)
  1. RIBAVIRAN 200 MG [Suspect]
     Active Substance: RIBAVIRIN
     Indication: HEPATITIS C
     Dosage: 3 PILLS BID
     Route: 048
     Dates: start: 20150722, end: 20150812
  2. SOVALDI [Suspect]
     Active Substance: SOFOSBUVIR
     Indication: HEPATITIS C
     Dosage: 1 PILL QD
     Route: 048
     Dates: start: 20150723, end: 20150812

REACTIONS (1)
  - Transfusion [None]

NARRATIVE: CASE EVENT DATE: 20150812
